FAERS Safety Report 9280976 (Version 1)
Quarter: 2013Q2

REPORT INFORMATION
  Report Type: Spontaneous
  Country: GB (occurrence: GB)
  Receive Date: 20130509
  Receipt Date: 20130509
  Transmission Date: 20140414
  Serious: Yes (Other)
  Sender: FDA-Public Use
  Company Number: GB-ASTRAZENECA-2013SE30387

PATIENT
  Age: 74 Year
  Sex: Male

DRUGS (4)
  1. ATENOLOL [Suspect]
     Indication: HYPERTENSION
     Route: 048
     Dates: start: 2005
  2. ATENOLOL (TILLOMED) [Suspect]
     Indication: HYPERTENSION
     Route: 048
     Dates: start: 20130415
  3. SUCRALFATE [Concomitant]
     Indication: DUODENITIS
  4. TRAMADOL [Concomitant]
     Indication: PAIN
     Dates: end: 20130417

REACTIONS (8)
  - Swelling face [Not Recovered/Not Resolved]
  - Pruritus [Recovering/Resolving]
  - Malaise [Not Recovered/Not Resolved]
  - Burning sensation [Recovering/Resolving]
  - Headache [Not Recovered/Not Resolved]
  - Rash [Recovering/Resolving]
  - Paraesthesia [Recovering/Resolving]
  - Fatigue [Not Recovered/Not Resolved]
